FAERS Safety Report 18429694 (Version 4)
Quarter: 2021Q2

REPORT INFORMATION
  Report Type: Spontaneous
  Country: US (occurrence: US)
  Receive Date: 20201026
  Receipt Date: 20210528
  Transmission Date: 20210717
  Serious: Yes (Hospitalization)
  Sender: FDA-Public Use
  Company Number: US-BIOCODEX SA-202001436

PATIENT

DRUGS (9)
  1. LEVETIRACETAM. [Concomitant]
     Active Substance: LEVETIRACETAM
     Indication: PRODUCT USED FOR UNKNOWN INDICATION
     Route: 065
  2. DIAZEPAM. [Concomitant]
     Active Substance: DIAZEPAM
     Indication: PRODUCT USED FOR UNKNOWN INDICATION
     Route: 065
  3. DIACOMIT [Suspect]
     Active Substance: STIRIPENTOL
     Indication: SEVERE MYOCLONIC EPILEPSY OF INFANCY
     Dosage: 250MG TWICE A DAY.
     Route: 065
  4. DIACOMIT [Suspect]
     Active Substance: STIRIPENTOL
     Dosage: MIX ONE 250MG PACKET IN 10ML OF WATER AND TAKE 5ML (125MG) BY MOUTH ONCE DAILY FOR 1 WEEK THEN 5ML (
     Route: 065
     Dates: start: 20200813
  5. KEPPRA [Concomitant]
     Active Substance: LEVETIRACETAM
     Indication: PRODUCT USED FOR UNKNOWN INDICATION
     Route: 065
  6. ONFI [Concomitant]
     Active Substance: CLOBAZAM
     Indication: SEVERE MYOCLONIC EPILEPSY OF INFANCY
     Route: 065
  7. TOPAMAX [Concomitant]
     Active Substance: TOPIRAMATE
     Indication: PRODUCT USED FOR UNKNOWN INDICATION
     Route: 065
  8. DIACOMIT [Suspect]
     Active Substance: STIRIPENTOL
     Dosage: 250MG TWICE A DAY.
     Route: 065
  9. PHENOBARBITAL. [Concomitant]
     Active Substance: PHENOBARBITAL
     Indication: PRODUCT USED FOR UNKNOWN INDICATION
     Route: 065

REACTIONS (2)
  - Seizure [Unknown]
  - Viral infection [Unknown]

NARRATIVE: CASE EVENT DATE: 20201014
